FAERS Safety Report 11916611 (Version 1)
Quarter: 2016Q1

REPORT INFORMATION
  Report Type: Spontaneous
  Country: US (occurrence: US)
  Receive Date: 20160114
  Receipt Date: 20160114
  Transmission Date: 20160526
  Serious: No
  Sender: FDA-Public Use
  Company Number: US-AMNEAL PHARMACEUTICALS-2016AMN00021

PATIENT
  Age: 36 Year
  Sex: Male
  Weight: 184.58 kg

DRUGS (5)
  1. ZANTAC [Concomitant]
     Active Substance: RANITIDINE HYDROCHLORIDE
  2. OXYCODONE AND ACETAMINOPHEN [Suspect]
     Active Substance: ACETAMINOPHEN\OXYCODONE HYDROCHLORIDE
     Indication: PAIN
     Dosage: 1 TABLETS, UP TO 6X/DAY
     Route: 048
     Dates: start: 20150601, end: 201506
  3. INSULIN [Concomitant]
     Active Substance: INSULIN NOS
     Dosage: UNK, 1X/DAY
     Dates: start: 201501
  4. TOPAMAX [Concomitant]
     Active Substance: TOPIRAMATE
  5. EIGHT BLOOD PRESSURE MEDICATIONS (UNKNOWN) [Concomitant]

REACTIONS (3)
  - Product substitution issue [Recovering/Resolving]
  - Drug ineffective [Recovering/Resolving]
  - Metabolic disorder [Recovering/Resolving]

NARRATIVE: CASE EVENT DATE: 201506
